FAERS Safety Report 8180194-5 (Version None)
Quarter: 2012Q1

REPORT INFORMATION
  Report Type: 
  Country: None (occurrence: None)
  Receive Date: 20120302
  Receipt Date: 20120228
  Transmission Date: 20120608
  Serious: Yes (Death, Other)
  Sender: FDA-Public Use
  Company Number: US-AMGEN-USASP2012012967

PATIENT
  Sex: Female

DRUGS (15)
  1. RANITIDINE [Concomitant]
  2. ENALAPRIL MALEATE [Concomitant]
  3. REGULAR INSULIN [Concomitant]
  4. LEVOTHYROXINE SODIUM [Concomitant]
  5. CARVEDILOL [Concomitant]
  6. FUROSEMIDE [Concomitant]
  7. DOCUSATE [Concomitant]
  8. GLIPIZIDE [Concomitant]
  9. NIACIN [Concomitant]
  10. SIMVASTATIN [Concomitant]
  11. PREDNISONE TAB [Concomitant]
     Dosage: 60 MG, QD
  12. AMLODIPINE [Concomitant]
  13. NPLATE [Suspect]
     Indication: AUTOIMMUNE THROMBOCYTOPENIA
     Dosage: 2 MUG/KG, UNK
     Dates: start: 20120103
  14. SINGULAIR [Concomitant]
  15. NOVOLIN 70/30 [Concomitant]

REACTIONS (5)
  - HEADACHE [None]
  - MYALGIA [None]
  - DEATH [None]
  - PAIN [None]
  - DIABETES MELLITUS INADEQUATE CONTROL [None]
